FAERS Safety Report 9919141 (Version 1)
Quarter: 2014Q1

REPORT INFORMATION
  Report Type: Not Available
  Country: US (occurrence: US)
  Receive Date: 20140224
  Receipt Date: 20140224
  Transmission Date: 20141002
  Serious: No
  Sender: FDA-Public Use
  Company Number: US-AMARIN PHARMA, INC.-2013AMR000087

PATIENT
  Age: 63 Year
  Sex: Male
  Weight: 98.97 kg

DRUGS (11)
  1. VASCEPA [Suspect]
     Indication: BLOOD TRIGLYCERIDES
     Route: 048
     Dates: start: 20130802, end: 20130822
  2. VASCEPA [Suspect]
     Route: 048
     Dates: start: 201310
  3. COLCRYS [Concomitant]
     Indication: GOUT
  4. ULORIC [Concomitant]
     Indication: GOUT
  5. ESOMEPRAZOLE [Concomitant]
     Indication: GASTROOESOPHAGEAL REFLUX DISEASE
  6. CREON [Concomitant]
     Indication: PANCREATIC ENZYMES
     Dosage: 18-24 PER DAY
  7. BENICAR [Concomitant]
     Indication: HYPERTENSION
  8. METOPROLOL [Concomitant]
     Indication: HYPERTENSION
  9. CYMBALTA [Concomitant]
     Indication: NEUROPATHY PERIPHERAL
  10. LIVALO [Concomitant]
     Indication: BLOOD CHOLESTEROL ABNORMAL
     Dates: start: 201308
  11. CIALIS [Concomitant]
     Indication: BENIGN PROSTATIC HYPERPLASIA

REACTIONS (3)
  - Abdominal distension [Recovered/Resolved]
  - Faeces pale [Unknown]
  - Pancreatic enzymes increased [Recovering/Resolving]
